FAERS Safety Report 15861690 (Version 1)
Quarter: 2019Q1

REPORT INFORMATION
  Report Type: Spontaneous
  Country: US (occurrence: US)
  Receive Date: 20190124
  Receipt Date: 20190124
  Transmission Date: 20190417
  Serious: No
  Sender: FDA-Public Use
  Company Number: None

PATIENT
  Age: 47 Year
  Sex: Female
  Weight: 67.5 kg

DRUGS (2)
  1. LINZESS [Suspect]
     Active Substance: LINACLOTIDE
     Indication: CONSTIPATION
     Dosage: ?          QUANTITY:4 CAPSULE(S);?
     Route: 048
     Dates: end: 20190124
  2. VITAMIN D3 [Concomitant]
     Active Substance: CHOLECALCIFEROL

REACTIONS (5)
  - Diarrhoea [None]
  - Headache [None]
  - Hyperglycaemia [None]
  - Palpitations [None]
  - Heart rate increased [None]

NARRATIVE: CASE EVENT DATE: 20190124
